FAERS Safety Report 9728447 (Version 2)
Quarter: 2014Q1

REPORT INFORMATION
  Report Type: Spontaneous
  Country: JP (occurrence: JP)
  Receive Date: 20131204
  Receipt Date: 20140130
  Transmission Date: 20141002
  Serious: Yes (Hospitalization)
  Sender: FDA-Public Use
  Company Number: JP-SA-2013SA124525

PATIENT
  Age: 61 Year
  Sex: Female

DRUGS (1)
  1. GLIMEPIRIDE [Suspect]
     Indication: DIABETES MELLITUS
     Route: 065
     Dates: start: 201204

REACTIONS (3)
  - Hypoglycaemic encephalopathy [Recovered/Resolved]
  - Altered state of consciousness [Recovered/Resolved]
  - VIIth nerve paralysis [Unknown]
